FAERS Safety Report 6151577-X (Version None)
Quarter: 2009Q2

REPORT INFORMATION
  Report Type: 
  Country: None (occurrence: None)
  Receive Date: 20090410
  Receipt Date: 20090403
  Transmission Date: 20091009
  Serious: Yes (Death)
  Sender: FDA-Public Use
  Company Number: NZ-ROCHE-625445

PATIENT

DRUGS (6)
  1. NAPROXEN [Suspect]
     Indication: DRUG USE FOR UNKNOWN INDICATION
     Route: 065
  2. ADALIMUMAB [Suspect]
     Route: 065
  3. LEFLUNOMIDE [Suspect]
     Route: 065
  4. METHOTREXATE [Suspect]
     Route: 065
  5. PREDNISONE [Suspect]
     Route: 065
  6. ANTICOAGULANT [Suspect]
     Route: 065

REACTIONS (5)
  - CEREBRAL HAEMORRHAGE [None]
  - HYPERTENSION [None]
  - MULTI-ORGAN FAILURE [None]
  - PNEUMONIA BACTERIAL [None]
  - SEPSIS [None]
